FAERS Safety Report 14972884 (Version 1)
Quarter: 2018Q2

REPORT INFORMATION
  Report Type: Spontaneous
  Country: IT (occurrence: IT)
  Receive Date: 20180605
  Receipt Date: 20180605
  Transmission Date: 20180711
  Serious: Yes (Hospitalization)
  Sender: FDA-Public Use
  Company Number: IT-ROCHE-2134604

PATIENT
  Age: 53 Year
  Sex: Male

DRUGS (7)
  1. ABSTRAL [Suspect]
     Active Substance: FENTANYL CITRATE
     Indication: HEADACHE
     Route: 060
     Dates: start: 20180317, end: 20180317
  2. SUBUTEX [Suspect]
     Active Substance: BUPRENORPHINE HYDROCHLORIDE
     Indication: PAIN
     Route: 060
     Dates: start: 20180317, end: 20180317
  3. PROZAC [Concomitant]
     Active Substance: FLUOXETINE HYDROCHLORIDE
     Route: 048
     Dates: start: 20170101
  4. MORPHINE [Suspect]
     Active Substance: MORPHINE
     Indication: HEADACHE
     Route: 065
     Dates: start: 20180317, end: 20180317
  5. ATENOLOL. [Concomitant]
     Active Substance: ATENOLOL
     Indication: HEADACHE
     Route: 048
     Dates: start: 20170101
  6. RIVOTRIL [Suspect]
     Active Substance: CLONAZEPAM
     Indication: PRODUCT USED FOR UNKNOWN INDICATION
     Route: 048
     Dates: start: 20180317, end: 20180317
  7. OPTALIDON [Suspect]
     Active Substance: ACETAMINOPHEN\CAFFEINE OR CAFFEINE\PROPYPHENAZONE OR IBUPROFEN
     Indication: HEADACHE
     Route: 048
     Dates: start: 20180317, end: 20180317

REACTIONS (3)
  - Miosis [Recovered/Resolved]
  - Sopor [Recovered/Resolved]
  - Overdose [Unknown]

NARRATIVE: CASE EVENT DATE: 20180317
